FAERS Safety Report 4405197-5 (Version None)
Quarter: 2004Q3

REPORT INFORMATION
  Report Type: 
  Country: None (occurrence: None)
  Receive Date: 20040723
  Receipt Date: 20040715
  Transmission Date: 20050211
  Serious: Yes (Other)
  Sender: FDA-Public Use
  Company Number: 200415357US

PATIENT
  Sex: Female

DRUGS (5)
  1. TAXOTERE [Suspect]
     Indication: BREAST CANCER
     Route: 042
  2. BENADRYL [Concomitant]
     Indication: PREMEDICATION
     Dosage: DOSE: NOT PROVIDED
  3. ALOXI [Concomitant]
     Indication: PREMEDICATION
     Dosage: DOSE: NOT PROVIDED
  4. UNKNOWN DRUG [Concomitant]
     Indication: PREMEDICATION
     Dosage: DOSE: NOT PROVIDED
  5. TAXOL [Concomitant]
     Indication: BREAST CANCER
     Dosage: DOSE: NOT PROVIDED

REACTIONS (3)
  - GRIP STRENGTH DECREASED [None]
  - HYPOTONIA [None]
  - MUSCLE ATROPHY [None]
